FAERS Safety Report 11132595 (Version 1)
Quarter: 2015Q2

REPORT INFORMATION
  Report Type: Report from Study
  Country: JP (occurrence: JP)
  Receive Date: 20150522
  Receipt Date: 20150522
  Transmission Date: 20150821
  Serious: Yes (Death)
  Sender: FDA-Public Use
  Company Number: JP-PFIZER INC-2015172213

PATIENT

DRUGS (3)
  1. EPIRUBICIN HCL [Suspect]
     Active Substance: EPIRUBICIN HYDROCHLORIDE
     Indication: HEPATOCELLULAR CARCINOMA
     Dosage: UNK
     Route: 065
  2. IODIZED OIL [Concomitant]
     Active Substance: IODIZED OIL
     Indication: HEPATOCELLULAR CARCINOMA
  3. GELATIN [Concomitant]
     Active Substance: GELATIN
     Indication: HEPATOCELLULAR CARCINOMA

REACTIONS (1)
  - Liver carcinoma ruptured [Fatal]
